FAERS Safety Report 14846431 (Version 1)
Quarter: 2018Q2

REPORT INFORMATION
  Report Type: Report from Study
  Country: None (occurrence: US)
  Receive Date: 20180504
  Receipt Date: 20180504
  Transmission Date: 20180711
  Serious: Yes (Hospitalization)
  Sender: FDA-Public Use
  Company Number: US-ABBVIE-18K-163-2337451-00

PATIENT
  Age: 67 Year
  Sex: Female
  Weight: 129.39 kg

DRUGS (2)
  1. HUMIRA [Suspect]
     Active Substance: ADALIMUMAB
     Indication: PSORIATIC ARTHROPATHY
     Route: 058
     Dates: start: 201706, end: 201802
  2. METHOTREXATE. [Suspect]
     Active Substance: METHOTREXATE
     Indication: PSORIATIC ARTHROPATHY
     Route: 065

REACTIONS (14)
  - Hypertension [Recovering/Resolving]
  - Asthenia [Recovering/Resolving]
  - Oxygen saturation decreased [Recovering/Resolving]
  - Muscular weakness [Recovering/Resolving]
  - Fungal sepsis [Unknown]
  - Fall [Not Recovered/Not Resolved]
  - Pneumonitis [Recovering/Resolving]
  - Fatigue [Recovering/Resolving]
  - Rotator cuff syndrome [Recovering/Resolving]
  - Immunodeficiency [Recovering/Resolving]
  - Pulmonary mycosis [Recovering/Resolving]
  - Chills [Recovering/Resolving]
  - Oedema [Recovering/Resolving]
  - Mobility decreased [Recovering/Resolving]

NARRATIVE: CASE EVENT DATE: 2018
